FAERS Safety Report 6718450-7 (Version None)
Quarter: 2010Q2

REPORT INFORMATION
  Report Type: 
  Country: None (occurrence: None)
  Receive Date: 20100510
  Receipt Date: 20100429
  Transmission Date: 20101027
  Serious: Yes (Hospitalization)
  Sender: FDA-Public Use
  Company Number: GB-MEDIMMUNE-MEDI-0011046

PATIENT
  Sex: Female
  Weight: 5.2 kg

DRUGS (2)
  1. SYNAGIS [Suspect]
     Dates: start: 20091103, end: 20091230
  2. SYNAGIS [Suspect]
     Dates: start: 20100127

REACTIONS (3)
  - BRONCHIOLITIS [None]
  - OXYGEN SUPPLEMENTATION [None]
  - RESPIRATORY SYNCYTIAL VIRUS BRONCHIOLITIS [None]
